FAERS Safety Report 9588127 (Version 1)
Quarter: 2013Q4

REPORT INFORMATION
  Report Type: Spontaneous
  Country: US (occurrence: US)
  Receive Date: 20131003
  Receipt Date: 20131003
  Transmission Date: 20140711
  Serious: Yes (Other)
  Sender: FDA-Public Use
  Company Number: US-RB-058944-13

PATIENT
  Age: 0 None
  Sex: Female

DRUGS (2)
  1. BUPRENORPHINE GENERIC [Suspect]
     Indication: DRUG DEPENDENCE
     Route: 064
     Dates: start: 201207, end: 20130109
  2. BUPRENORPHINE GENERIC [Suspect]
     Route: 063
     Dates: start: 201301, end: 201303

REACTIONS (5)
  - Foetal exposure during pregnancy [Recovered/Resolved]
  - Premature baby [Recovered/Resolved]
  - Grunting [Recovered/Resolved]
  - Exposure during breast feeding [Recovered/Resolved]
  - Gastrooesophageal reflux disease [Recovered/Resolved]
